FAERS Safety Report 5467160-5 (Version None)
Quarter: 2007Q3

REPORT INFORMATION
  Report Type: 
  Country: None (occurrence: None)
  Receive Date: 20070921
  Receipt Date: 20070921
  Transmission Date: 20080115
  Serious: Yes (Life-Threatening, Disabling, Other)
  Sender: FDA-Public Use
  Company Number: None

PATIENT
  Age: 41 Year
  Sex: Male
  Weight: 113.3993 kg

DRUGS (1)
  1. BIAXIN [Suspect]
     Indication: KIDNEY INFECTION
     Dosage: DO NOT RECALL DO NOT RECALL PO
     Route: 048
     Dates: start: 20020920, end: 20020924

REACTIONS (2)
  - KIDNEY ENLARGEMENT [None]
  - RENAL IMPAIRMENT [None]
